FAERS Safety Report 22346856 (Version 1)
Quarter: 2023Q2

REPORT INFORMATION
  Report Type: Spontaneous
  Country: US (occurrence: US)
  Receive Date: 20230520
  Receipt Date: 20230520
  Transmission Date: 20230721
  Serious: Yes (Other)
  Sender: FDA-Public Use
  Company Number: US-drreddys-SPO/USA/23/0165210

PATIENT
  Age: 15 Year

DRUGS (2)
  1. ZENATANE [Suspect]
     Active Substance: ISOTRETINOIN
     Indication: Product used for unknown indication
     Dosage: RMA ISSUE DATE: 21 DECEMBER 2022 01:57:24 PM, 26 JANUARY 2023 11:30:09 AM
  2. ZENATANE [Suspect]
     Active Substance: ISOTRETINOIN
     Dosage: RMA ISSUE DATE: 03 MARCH 2023 11:24:28 AM, 05 APRIL 2023 11:17:33 AM

REACTIONS (1)
  - Suicidal ideation [Unknown]
